FAERS Safety Report 7138610-3 (Version None)
Quarter: 2010Q4

REPORT INFORMATION
  Report Type: 
  Country: None (occurrence: None)
  Receive Date: 20101109
  Receipt Date: 20101029
  Transmission Date: 20110411
  Serious: Yes (Death, Life-Threatening, Disabling, Other)
  Sender: FDA-Public Use
  Company Number: THYM-1001043

PATIENT
  Age: 48 Year
  Sex: Female
  Weight: 38 kg

DRUGS (29)
  1. THYMOGLOBULIN [Suspect]
     Indication: PREOPERATIVE CARE
     Dosage: 95 MG, QD, INTRAVENOUS
     Route: 042
     Dates: start: 20090311, end: 20090314
  2. LANSOPRAZOLE [Concomitant]
  3. ACYCLOVIR [Concomitant]
  4. NIFEDIPINE [Concomitant]
  5. PREDNISOLONE [Concomitant]
  6. SODIUM ALGINATE (SODIUM ALGINATE) [Concomitant]
  7. CYCLOSPORINE [Concomitant]
  8. POTASSIUM CHLORIDE [Concomitant]
  9. METOCLOPRAMIDE [Concomitant]
  10. ACETAMINOPHEN [Concomitant]
  11. HEPARINOID (HEPARINOID) [Concomitant]
  12. MICAFUNGIN SODIUM (MICAFUNGIN SODIUM) [Concomitant]
  13. CEFEPIME DIHYDROCHLORIDE (CEFEPIME DIHYDROCHLORIDE) [Concomitant]
  14. VANCOMYCIN HYDROCHLORIDE [Concomitant]
  15. HYDROCORTISONE SODIUM SUCCINATE [Concomitant]
  16. AMINO ACID/CARBOHYDRATE/ELECTROLYTE/VITAMIN (AMINO ACID/CARBOHYDRATE/E [Concomitant]
  17. MANGANESE CHLORIDE/ ZINC SULFATE (MANGANESE CHLORIDE/ ZINC SULFATE) [Concomitant]
  18. MAGNESIUM SULFATE [Concomitant]
  19. GANCICLOVIR [Concomitant]
  20. PENTAZOCINE LACTATE [Concomitant]
  21. PROCHLORPERAZINE MALEATE [Concomitant]
  22. METHYLPREDNISOLONE [Concomitant]
  23. CYCLOPHOSPHAMIDE [Concomitant]
  24. FLUDARABINE PHOSPHATE [Concomitant]
  25. CHLORPHENIRAMINE MALEATE (CHLORPHENIRAMINE MALEATE) [Concomitant]
  26. METHOTREXATE [Concomitant]
  27. FILGRASTIM (FILGRASTIM) [Concomitant]
  28. ITRACONAZOLE [Concomitant]
  29. FOSCARNET SODIUM [Concomitant]

REACTIONS (12)
  - ALTERED STATE OF CONSCIOUSNESS [None]
  - ATONIC SEIZURES [None]
  - CYSTITIS HAEMORRHAGIC [None]
  - CYTOMEGALOVIRUS CHORIORETINITIS [None]
  - CYTOMEGALOVIRUS TEST POSITIVE [None]
  - PANCYTOPENIA [None]
  - PYREXIA [None]
  - RESPIRATORY FAILURE [None]
  - SHOCK HAEMORRHAGIC [None]
  - STEM CELL TRANSPLANT [None]
  - VIRAL INFECTION [None]
  - VISUAL IMPAIRMENT [None]
